APPROVED DRUG PRODUCT: CLINDAMYCIN PHOSPHATE
Active Ingredient: CLINDAMYCIN PHOSPHATE
Strength: EQ 1% BASE
Dosage Form/Route: GEL;TOPICAL
Application: A214668 | Product #001 | TE Code: AB2
Applicant: AMNEAL PHARMACEUTICALS LLC
Approved: Aug 5, 2022 | RLD: No | RS: No | Type: RX